FAERS Safety Report 22969723 (Version 7)
Quarter: 2023Q4

REPORT INFORMATION
  Report Type: Spontaneous
  Country: PT (occurrence: PT)
  Receive Date: 20230922
  Receipt Date: 20231019
  Transmission Date: 20240110
  Serious: Yes (Other)
  Sender: FDA-Public Use
  Company Number: PT-CELLTRION INC.-2023PT018404

PATIENT

DRUGS (30)
  1. INFLIXIMAB [Suspect]
     Active Substance: INFLIXIMAB
     Indication: Crohn^s disease
     Dosage: UNK
     Route: 058
     Dates: start: 202209, end: 20230127
  2. INFLIXIMAB [Suspect]
     Active Substance: INFLIXIMAB
     Dosage: UNK
     Route: 058
     Dates: start: 202209, end: 20230202
  3. INFLIXIMAB [Suspect]
     Active Substance: INFLIXIMAB
     Dosage: UNK
     Route: 058
     Dates: start: 202209, end: 20230210
  4. INFLIXIMAB [Suspect]
     Active Substance: INFLIXIMAB
     Dosage: UNK
     Route: 058
     Dates: start: 20230414, end: 20230414
  5. INFLIXIMAB [Suspect]
     Active Substance: INFLIXIMAB
     Dosage: 120 MG, EVERY 15 DAYS
     Route: 058
     Dates: start: 20230417
  6. INFLIXIMAB [Suspect]
     Active Substance: INFLIXIMAB
     Dosage: 120 MG, EVERY 15 DAYS / DOSES ON; 14/7 28/7
     Route: 058
     Dates: start: 20230714
  7. INFLIXIMAB [Suspect]
     Active Substance: INFLIXIMAB
     Dosage: 120 MG, EVERY 15 DAYS / DOSES ON; 14/7 28/7
     Route: 058
     Dates: start: 20230728
  8. INFLIXIMAB [Suspect]
     Active Substance: INFLIXIMAB
     Dosage: 120 MG EVERY 15 DAY / DOSES ON; 18/08
     Route: 058
     Dates: start: 20230818
  9. INFLIXIMAB [Suspect]
     Active Substance: INFLIXIMAB
     Dosage: 120 MG EVERY 15 DAY / DOSES ON; 01/09
     Route: 058
     Dates: start: 20230901
  10. INFLIXIMAB [Suspect]
     Active Substance: INFLIXIMAB
     Dosage: 120 MG EVERY 15 DAY / DOSES ON; 15/09
     Route: 058
     Dates: start: 20230915
  11. INFLIXIMAB [Suspect]
     Active Substance: INFLIXIMAB
     Dosage: 120 MG / ML
     Route: 058
     Dates: start: 20220902
  12. INFLIXIMAB [Suspect]
     Active Substance: INFLIXIMAB
     Dosage: 120 MG / ML
     Route: 058
     Dates: start: 20220916
  13. INFLIXIMAB [Suspect]
     Active Substance: INFLIXIMAB
     Dosage: 120 MG / ML
     Route: 058
     Dates: start: 20220930
  14. INFLIXIMAB [Suspect]
     Active Substance: INFLIXIMAB
     Dosage: 120 MG / ML
     Route: 058
     Dates: start: 20221014
  15. INFLIXIMAB [Suspect]
     Active Substance: INFLIXIMAB
     Dosage: 120 MG / ML
     Route: 058
     Dates: start: 20221031
  16. INFLIXIMAB [Suspect]
     Active Substance: INFLIXIMAB
     Dosage: 120 MG / ML
     Route: 058
     Dates: start: 20221118
  17. INFLIXIMAB [Suspect]
     Active Substance: INFLIXIMAB
     Dosage: 120 MG / ML
     Route: 058
     Dates: start: 20221202
  18. INFLIXIMAB [Suspect]
     Active Substance: INFLIXIMAB
     Dosage: 120 MG / ML
     Route: 058
     Dates: start: 20221216
  19. INFLIXIMAB [Suspect]
     Active Substance: INFLIXIMAB
     Dosage: 120 MG / ML
     Route: 058
     Dates: start: 20221229
  20. INFLIXIMAB [Suspect]
     Active Substance: INFLIXIMAB
     Dosage: 120 MG / ML
     Route: 058
     Dates: start: 20230113
  21. INFLIXIMAB [Suspect]
     Active Substance: INFLIXIMAB
     Dosage: 120 MG / ML
     Route: 058
     Dates: start: 20230127
  22. INFLIXIMAB [Suspect]
     Active Substance: INFLIXIMAB
     Dosage: 120 MG / ML
     Route: 058
     Dates: start: 20230210
  23. INFLIXIMAB [Suspect]
     Active Substance: INFLIXIMAB
     Dosage: 120 MG / ML
     Route: 058
     Dates: start: 20230414
  24. INFLIXIMAB [Suspect]
     Active Substance: INFLIXIMAB
     Indication: Crohn^s disease
     Dosage: UNK
     Route: 042
     Dates: start: 202009, end: 202209
  25. INFLIXIMAB [Suspect]
     Active Substance: INFLIXIMAB
     Dosage: UNK
     Route: 042
     Dates: start: 20230317, end: 20230317
  26. INFLIXIMAB [Suspect]
     Active Substance: INFLIXIMAB
     Dosage: UNK
     Route: 042
     Dates: start: 20230616, end: 20230616
  27. INFLIXIMAB [Suspect]
     Active Substance: INFLIXIMAB
     Dosage: 300 MILLIGRAM, EVERY TOTAL
     Route: 042
     Dates: start: 20230626, end: 20230626
  28. INFLIXIMAB [Suspect]
     Active Substance: INFLIXIMAB
     Dosage: UNK
     Route: 042
     Dates: start: 20230317
  29. INFLIXIMAB [Suspect]
     Active Substance: INFLIXIMAB
     Dosage: UNK
     Route: 042
     Dates: start: 20230616
  30. AZATHIOPRINE [Suspect]
     Active Substance: AZATHIOPRINE
     Indication: Product used for unknown indication
     Dosage: 50 MILLIGRAM / VOLUNTARY DISCONTINUATION OF THERAPY
     Route: 048
     Dates: start: 202009

REACTIONS (8)
  - Crohn^s disease [Recovered/Resolved]
  - Local reaction [Recovered/Resolved]
  - Administration site pruritus [Recovered/Resolved]
  - Injection site erythema [Recovered/Resolved]
  - Drug level below therapeutic [Unknown]
  - Drug specific antibody absent [Unknown]
  - Off label use [Unknown]
  - Off label use [Unknown]

NARRATIVE: CASE EVENT DATE: 20230127
